FAERS Safety Report 13033029 (Version 1)
Quarter: 2016Q4

REPORT INFORMATION
  Report Type: Report from Study
  Country: US (occurrence: US)
  Receive Date: 20161215
  Receipt Date: 20161215
  Transmission Date: 20170207
  Serious: Yes (Hospitalization, Other)
  Sender: FDA-Public Use
  Company Number: PHHO2010US022082

PATIENT
  Age: 64 Year
  Sex: Female
  Weight: 73.3 kg

DRUGS (5)
  1. GW572016 [Suspect]
     Active Substance: LAPATINIB
     Indication: BREAST CANCER
     Dosage: 1500 MG, QD
     Route: 048
     Dates: start: 20100114
  2. NALTREXONE [Suspect]
     Active Substance: NALTREXONE
     Indication: PRODUCT USED FOR UNKNOWN INDICATION
     Route: 065
  3. TRASTUZUMAB [Suspect]
     Active Substance: TRASTUZUMAB
     Indication: BREAST CANCER
     Dosage: 2 MG/KG, QW
     Route: 042
     Dates: start: 20090910, end: 20091125
  4. PACLITAXEL. [Suspect]
     Active Substance: PACLITAXEL
     Indication: BREAST CANCER
     Dosage: 80 MG/M2, QW FOR 12 DOSES
     Route: 042
     Dates: start: 20090910, end: 20091125
  5. ALPHA LIPOIC ACID [Suspect]
     Active Substance: .ALPHA.-LIPOIC ACID
     Indication: PRODUCT USED FOR UNKNOWN INDICATION
     Route: 065

REACTIONS (5)
  - Rib fracture [Recovered/Resolved]
  - Pneumothorax [Recovered/Resolved]
  - Bone pain [Recovered/Resolved]
  - Waldenstrom^s macroglobulinaemia [Not Recovered/Not Resolved]
  - Left ventricular dysfunction [Not Recovered/Not Resolved]

NARRATIVE: CASE EVENT DATE: 20100707
